FAERS Safety Report 7293326-8 (Version None)
Quarter: 2011Q1

REPORT INFORMATION
  Report Type: 
  Country: None (occurrence: None)
  Receive Date: 20110215
  Receipt Date: 20110204
  Transmission Date: 20110831
  Serious: Yes (Hospitalization)
  Sender: FDA-Public Use
  Company Number: JP-NOVOPROD-322862

PATIENT
  Age: 7 Year
  Sex: Female

DRUGS (1)
  1. NORDITROPIN NORDIFLEX CHU [Suspect]
     Indication: SMALL FOR DATES BABY
     Dosage: UNKNOWN
     Route: 058

REACTIONS (1)
  - KAWASAKI'S DISEASE [None]
